FAERS Safety Report 7439613-1 (Version None)
Quarter: 2011Q2

REPORT INFORMATION
  Report Type: 
  Country: None (occurrence: None)
  Receive Date: 20110427
  Receipt Date: 20110414
  Transmission Date: 20111010
  Serious: Yes (Death, Life-Threatening)
  Sender: FDA-Public Use
  Company Number: ES-CELGENEUS-144-21880-11041701

PATIENT
  Age: 77 Year
  Sex: Male

DRUGS (2)
  1. DEXAMETHASONE [Concomitant]
     Route: 065
  2. REVLIMID [Suspect]
     Dosage: 25 MILLIGRAM
     Route: 048
     Dates: start: 20091001, end: 20100401

REACTIONS (1)
  - DISEASE PROGRESSION [None]
